FAERS Safety Report 5605139-0 (Version None)
Quarter: 2008Q1

REPORT INFORMATION
  Report Type: 
  Country: None (occurrence: None)
  Receive Date: 20080123
  Receipt Date: 20080110
  Transmission Date: 20080703
  Serious: Yes (Other)
  Sender: FDA-Public Use
  Company Number: 2008US000202

PATIENT
  Age: 29 Year
  Sex: Female

DRUGS (2)
  1. PROGRAF [Suspect]
     Indication: LIVER TRANSPLANT
     Dosage: 0.24 MG/KG,
  2. METHYLPREDNISOLONE [Concomitant]

REACTIONS (2)
  - COLD TYPE HAEMOLYTIC ANAEMIA [None]
  - LIVER TRANSPLANT REJECTION [None]
